FAERS Safety Report 12434739 (Version 1)
Quarter: 2016Q2

REPORT INFORMATION
  Report Type: Spontaneous
  Country: CZ (occurrence: CZ)
  Receive Date: 20160603
  Receipt Date: 20160603
  Transmission Date: 20160815
  Serious: Yes (Hospitalization, Other)
  Sender: FDA-Public Use
  Company Number: PHHY2016CZ073618

PATIENT
  Age: 36 Year
  Sex: Female

DRUGS (2)
  1. GENTAMICIN LEK [Suspect]
     Active Substance: GENTAMICIN
     Indication: INFECTION
     Dosage: 240 MG, QD
     Route: 041
     Dates: start: 20160510, end: 20160511
  2. AMOKSIKLAV [Concomitant]
     Active Substance: AMOXICILLIN\CLAVULANATE POTASSIUM
     Dosage: 1.2 G, TID
     Route: 042

REACTIONS (1)
  - Rash maculo-papular [Unknown]

NARRATIVE: CASE EVENT DATE: 20160511
